FAERS Safety Report 14402874 (Version 1)
Quarter: 2018Q1

REPORT INFORMATION
  Report Type: Spontaneous
  Country: FR (occurrence: FR)
  Receive Date: 20180117
  Receipt Date: 20180117
  Transmission Date: 20180509
  Serious: Yes (Hospitalization)
  Sender: FDA-Public Use
  Company Number: FR-PFIZER INC-2018021120

PATIENT
  Age: 27 Year
  Sex: Female

DRUGS (2)
  1. XANAX [Suspect]
     Active Substance: ALPRAZOLAM
     Dosage: 10 DF, SINGLE
     Route: 048
     Dates: start: 20171025, end: 20171025
  2. TRAMADOL. [Suspect]
     Active Substance: TRAMADOL
     Dosage: 90 DF, SINGLE
     Route: 048
     Dates: start: 20171025, end: 20171025

REACTIONS (1)
  - Toxicity to various agents [Unknown]

NARRATIVE: CASE EVENT DATE: 20171025
